FAERS Safety Report 8189369-2 (Version None)
Quarter: 2012Q1

REPORT INFORMATION
  Report Type: 
  Country: None (occurrence: None)
  Receive Date: 20120307
  Receipt Date: 20120301
  Transmission Date: 20120608
  Serious: Yes (Hospitalization)
  Sender: FDA-Public Use
  Company Number: US-BAYER-2011-044917

PATIENT
  Age: 19 Year
  Sex: Female
  Weight: 54.422 kg

DRUGS (8)
  1. ASCORBIC ACID [Concomitant]
     Dosage: UNK
     Dates: start: 20090101
  2. CALCIUM [Concomitant]
     Dosage: DAILY
  3. YAZ [Suspect]
     Indication: CONTRACEPTION
     Dosage: UNK
     Route: 048
     Dates: start: 20090422, end: 20100127
  4. YAZ [Suspect]
     Dosage: UNK
     Route: 048
     Dates: start: 20090422, end: 20100127
  5. YAZ [Suspect]
     Dosage: UNK
     Route: 048
     Dates: start: 20090422, end: 20100127
  6. MULTI-VITAMIN [Concomitant]
     Dosage: DAILY
  7. VITAMIN D [Concomitant]
     Dosage: DAILY
  8. YAZ [Suspect]
     Dosage: UNK
     Route: 048
     Dates: start: 20090422, end: 20100127

REACTIONS (13)
  - FLATULENCE [None]
  - DIARRHOEA [None]
  - CONSTIPATION [None]
  - EMOTIONAL DISTRESS [None]
  - ANXIETY [None]
  - ABDOMINAL PAIN [None]
  - NAUSEA [None]
  - ABDOMINAL PAIN UPPER [None]
  - DYSPEPSIA [None]
  - DISCOMFORT [None]
  - CHOLELITHIASIS [None]
  - GENERAL PHYSICAL HEALTH DETERIORATION [None]
  - CHOLECYSTITIS CHRONIC [None]
